FAERS Safety Report 9539255 (Version 2)
Quarter: 2013Q3

REPORT INFORMATION
  Report Type: Spontaneous
  Country: DE (occurrence: DE)
  Receive Date: 20130920
  Receipt Date: 20130920
  Transmission Date: 20140515
  Serious: Yes (Other)
  Sender: FDA-Public Use
  Company Number: DE-BANPHARM-20131668

PATIENT
  Age: 11 Week
  Sex: Male

DRUGS (4)
  1. IBUPROFEN UNKNOWN PRODUCT [Suspect]
     Indication: HEADACHE
     Dosage: 600 MG, QID,
     Route: 063
  2. PARACETAMOL [Suspect]
     Indication: HEADACHE
     Dosage: 4 G, 1DAY,
     Route: 063
  3. THEOPHYLLIN [Suspect]
     Indication: HEADACHE
     Dosage: 125 MG/DAY,
     Route: 063
  4. CIPROFLOXACIN [Suspect]
     Indication: WOUND
     Route: 063

REACTIONS (1)
  - Hepatobiliary disease [Unknown]
